FAERS Safety Report 7712054-5 (Version None)
Quarter: 2011Q3

REPORT INFORMATION
  Report Type: 
  Country: None (occurrence: None)
  Receive Date: 20110823
  Receipt Date: 20110809
  Transmission Date: 20111222
  Serious: Yes (Death)
  Sender: FDA-Public Use
  Company Number: 1713747-2011-00013

PATIENT
  Sex: Male
  Weight: 125 kg

DRUGS (2)
  1. DELFLEX W/ DEXTROSE 1.5% [Suspect]
     Indication: RENAL FAILURE CHRONIC
     Dosage: INTRAPERITONEALLY
     Route: 033
     Dates: start: 20110730
  2. DELFLEX W/ DEXTROSE 1.5% [Suspect]
     Indication: RENAL FAILURE CHRONIC
     Dosage: INTRAPERITONEALLY
     Route: 033
     Dates: start: 20110730

REACTIONS (3)
  - TREATMENT NONCOMPLIANCE [None]
  - CORONARY ARTERY DISEASE [None]
  - CARDIAC ARREST [None]
